FAERS Safety Report 9851484 (Version 4)
Quarter: 2014Q3

REPORT INFORMATION
  Report Type: Report from Study
  Country: US (occurrence: US)
  Receive Date: 20140129
  Receipt Date: 20140701
  Transmission Date: 20150326
  Serious: Yes (Hospitalization)
  Sender: FDA-Public Use
  Company Number: US-BIOGENIDEC-2014BI007191

PATIENT
  Age: 38 Year
  Sex: Male

DRUGS (37)
  1. ADDERALL [Concomitant]
     Active Substance: AMPHETAMINE ASPARTATE\AMPHETAMINE SULFATE\DEXTROAMPHETAMINE SACCHARATE\DEXTROAMPHETAMINE SULFATE
  2. CRANBERRY JUICE [Concomitant]
     Active Substance: CRANBERRY JUICE
  3. VITAMIN D3 [Concomitant]
     Active Substance: CHOLECALCIFEROL
  4. CULTURELLE [Concomitant]
     Active Substance: LACTOBACILLUS RHAMNOSUS
  5. PREDNISONE. [Concomitant]
     Active Substance: PREDNISONE
  6. BETHANECHOL [Concomitant]
     Active Substance: BETHANECHOL
  7. VITAMIN C [Concomitant]
     Active Substance: ASCORBIC ACID
  8. MORPHINE [Concomitant]
     Active Substance: MORPHINE
  9. SIMETHICONE [Concomitant]
     Active Substance: DIMETHICONE\SILICON DIOXIDE\SIMETHICONE
  10. HYDROMORPHONE [Concomitant]
     Active Substance: HYDROMORPHONE
  11. LEVAQUIN [Concomitant]
     Active Substance: LEVOFLOXACIN
  12. BENADRYL [Concomitant]
     Active Substance: DIPHENHYDRAMINE HYDROCHLORIDE
  13. OMEPRAZOLE. [Concomitant]
     Active Substance: OMEPRAZOLE
  14. ALPRAZOLAM. [Concomitant]
     Active Substance: ALPRAZOLAM
  15. VICOPROFEN [Concomitant]
     Active Substance: HYDROCODONE BITARTRATE\IBUPROFEN
  16. DEXTROSE. [Concomitant]
     Active Substance: DEXTROSE
  17. OMEGA-3 FATTY ACIDS [Concomitant]
     Active Substance: OMEGA-3 FATTY ACIDS
  18. LAMISIL [Concomitant]
     Active Substance: TERBINAFINE HYDROCHLORIDE
  19. TYSABRI [Suspect]
     Active Substance: NATALIZUMAB
     Indication: MULTIPLE SCLEROSIS
     Route: 042
     Dates: start: 20120328
  20. KLONOPIN [Concomitant]
     Active Substance: CLONAZEPAM
  21. EPIPEN [Concomitant]
     Active Substance: EPINEPHRINE
  22. BUTRANS [Concomitant]
     Active Substance: BUPRENORPHINE
  23. ZOLPIDEM [Concomitant]
     Active Substance: ZOLPIDEM\ZOLPIDEM TARTRATE
  24. CYMBALTA [Concomitant]
     Active Substance: DULOXETINE HYDROCHLORIDE
  25. TIZANIDINE [Concomitant]
     Active Substance: TIZANIDINE
  26. DOCUSATE SODIUM. [Concomitant]
     Active Substance: DOCUSATE SODIUM
  27. GABAPENTIN. [Concomitant]
     Active Substance: GABAPENTIN
  28. METHADONE [Concomitant]
     Active Substance: METHADONE HYDROCHLORIDE
  29. TUMS [Concomitant]
     Active Substance: CALCIUM CARBONATE
  30. IBUPROFEN. [Concomitant]
     Active Substance: IBUPROFEN
  31. METHENAMINE [Concomitant]
     Active Substance: METHENAMINE
  32. SUDAFED [Concomitant]
     Active Substance: PSEUDOEPHEDRINE HYDROCHLORIDE
  33. TYSABRI [Suspect]
     Active Substance: NATALIZUMAB
     Indication: MULTIPLE SCLEROSIS
     Route: 042
  34. BIOTENE [Concomitant]
     Active Substance: SODIUM MONOFLUOROPHOSPHATE
  35. HYDROXYZINE [Concomitant]
     Active Substance: HYDROXYZINE\HYDROXYZINE HYDROCHLORIDE
  36. VIAGRA [Concomitant]
     Active Substance: SILDENAFIL CITRATE
  37. TOPIRAMATE. [Concomitant]
     Active Substance: TOPIRAMATE

REACTIONS (7)
  - Klebsiella infection [Unknown]
  - Bronchitis [Recovered/Resolved]
  - Multiple sclerosis relapse [Recovered/Resolved]
  - Urinary tract infection [Recovered/Resolved]
  - Urosepsis [Recovered/Resolved]
  - Asthenia [Not Recovered/Not Resolved]
  - Inappropriate schedule of drug administration [Unknown]

NARRATIVE: CASE EVENT DATE: 20131008
